FAERS Safety Report 5095521-5 (Version None)
Quarter: 2006Q3

REPORT INFORMATION
  Report Type: 
  Country: None (occurrence: None)
  Receive Date: 20060831
  Receipt Date: 20060831
  Transmission Date: 20061208
  Serious: Yes (Life-Threatening, Hospitalization)
  Sender: FDA-Public Use
  Company Number: None

PATIENT
  Age: 73 Year
  Sex: Female
  Weight: 94 kg

DRUGS (16)
  1. WARFARIN SODIUM [Suspect]
     Indication: FIBULA FRACTURE
     Dosage: ACCORDING TO INR
  2. WARFARIN SODIUM [Suspect]
     Indication: OPEN REDUCTION OF FRACTURE
     Dosage: ACCORDING TO INR
  3. WARFARIN SODIUM [Suspect]
     Indication: THROMBOSIS PROPHYLAXIS
     Dosage: ACCORDING TO INR
  4. WARFARIN SODIUM [Suspect]
     Indication: TIBIA FRACTURE
     Dosage: ACCORDING TO INR
  5. ASPIRIN [Concomitant]
  6. PIOGLITAZONE HCL [Concomitant]
  7. SIMVASTATIN [Concomitant]
  8. ESTROGENS SOL/INJ [Concomitant]
  9. HYDROCHLOROTHIAZIDE [Concomitant]
  10. LISINOPRIL [Concomitant]
  11. . [Concomitant]
  12. MORPHINE [Concomitant]
  13. QUAIFENESIN [Concomitant]
  14. CLARITIN [Concomitant]
  15. HUMALOG [Concomitant]
  16. AMBIEN [Concomitant]

REACTIONS (6)
  - ARTERIOVENOUS MALFORMATION [None]
  - HAEMATOCRIT DECREASED [None]
  - HAEMOGLOBIN DECREASED [None]
  - INTERNATIONAL NORMALISED RATIO INCREASED [None]
  - MELAENA [None]
  - TACHYCARDIA [None]
